FAERS Safety Report 20520851 (Version 1)
Quarter: 2022Q1

REPORT INFORMATION
  Report Type: Spontaneous
  Country: US (occurrence: US)
  Receive Date: 20220225
  Receipt Date: 20220225
  Transmission Date: 20220423
  Serious: No
  Sender: FDA-Public Use
  Company Number: US-PFIZER INC-202101227495

PATIENT
  Age: 21 Year
  Sex: Male
  Weight: 58.97 kg

DRUGS (4)
  1. TOZINAMERAN [Suspect]
     Active Substance: TOZINAMERAN
     Indication: COVID-19 immunisation
     Dosage: DOSE 2, SINGLE
     Dates: start: 20210915, end: 20210915
  2. GABAPENTIN [Suspect]
     Active Substance: GABAPENTIN
     Dosage: 800 MG, 1X/DAY (ONE TABLET BY MOUTH ONCE)
     Dates: start: 20210918
  3. IBUPROFEN [Suspect]
     Active Substance: IBUPROFEN
     Dosage: 1X/DAY (UNKNOWN DOSE. TOOK 3 TABLETS BY MOUTH ONCE)
     Dates: start: 20210918
  4. NORCO [Suspect]
     Active Substance: ACETAMINOPHEN\HYDROCODONE BITARTRATE
     Indication: Prophylaxis
     Dosage: 7.5 MG, 1X/DAY
     Dates: start: 20210918

REACTIONS (4)
  - Vomiting [Not Recovered/Not Resolved]
  - Toothache [Not Recovered/Not Resolved]
  - Pyrexia [Unknown]
  - Illness [Unknown]

NARRATIVE: CASE EVENT DATE: 20210101
